FAERS Safety Report 24733871 (Version 1)
Quarter: 2024Q4

REPORT INFORMATION
  Report Type: Spontaneous
  Country: CA (occurrence: CA)
  Receive Date: 20241214
  Receipt Date: 20241214
  Transmission Date: 20250115
  Serious: Yes (Other)
  Sender: TEVA
  Company Number: CA-TEVA-VS-3275442

PATIENT
  Sex: Male

DRUGS (2)
  1. MEMANTINE [Suspect]
     Active Substance: MEMANTINE
     Indication: Product used for unknown indication
     Route: 065
  2. GALANTAMINE [Suspect]
     Active Substance: GALANTAMINE
     Indication: Amnesia
     Dosage: DOSE FORM : NOT SPECIFIED
     Route: 065

REACTIONS (5)
  - Freezing phenomenon [Unknown]
  - Aphasia [Unknown]
  - Paralysis [Unknown]
  - Headache [Unknown]
  - Pain [Unknown]
